FAERS Safety Report 7996500-8 (Version None)
Quarter: 2011Q4

REPORT INFORMATION
  Report Type: 
  Country: None (occurrence: None)
  Receive Date: 20111220
  Receipt Date: 20111213
  Transmission Date: 20120403
  Serious: Yes (Other)
  Sender: FDA-Public Use
  Company Number: US-ASTRAZENECA-2011SE75909

PATIENT
  Age: 50 Year
  Sex: Female

DRUGS (4)
  1. OMEPRAZOLE [Interacting]
     Route: 048
  2. EPILEPSY MEDICATION [Interacting]
     Route: 065
  3. PRILOSEC OTC [Suspect]
     Route: 048
  4. ESOMEPRAZOLE MAGNESIUM [Interacting]
     Route: 048

REACTIONS (5)
  - DRUG INTERACTION [None]
  - DRUG INEFFECTIVE [None]
  - HAEMATEMESIS [None]
  - GASTRITIS [None]
  - DRUG EFFECT DECREASED [None]
